FAERS Safety Report 5926498-5 (Version None)
Quarter: 2008Q4

REPORT INFORMATION
  Report Type: 
  Country: None (occurrence: None)
  Receive Date: 20081022
  Receipt Date: 20081010
  Transmission Date: 20090506
  Serious: Yes (Other)
  Sender: FDA-Public Use
  Company Number: JP-ASTRAZENECA-2008AP07933

PATIENT
  Age: 72 Year
  Sex: Male
  Weight: 63 kg

DRUGS (11)
  1. NEXIUM [Suspect]
     Dosage: (CODE NOT BROKEN)
     Route: 048
     Dates: start: 20080403, end: 20080917
  2. PRORNER [Concomitant]
     Indication: OSTEOARTHRITIS
     Route: 048
     Dates: start: 20071218, end: 20080320
  3. ALLOID G [Concomitant]
     Indication: GASTRIC HAEMORRHAGE
     Route: 048
     Dates: start: 20080321, end: 20080324
  4. LOXONIN [Concomitant]
     Indication: OSTEOARTHRITIS
     Route: 048
     Dates: start: 20071218
  5. LACTION [Concomitant]
     Indication: OSTEOARTHRITIS
     Dosage: AS REQUIRED
     Route: 062
     Dates: start: 20071218
  6. SELBEX [Concomitant]
     Indication: GASTRITIS PROPHYLAXIS
     Route: 048
     Dates: start: 20071218
  7. MYONAL [Concomitant]
     Indication: OSTEOARTHRITIS
     Route: 048
     Dates: start: 20071218
  8. DEPAS [Concomitant]
     Indication: INSOMNIA
     Route: 048
     Dates: start: 20071218
  9. MYSLEE [Concomitant]
     Indication: INSOMNIA
     Route: 048
     Dates: start: 20071218
  10. ARTZ [Concomitant]
     Indication: OSTEOARTHRITIS
     Route: 014
     Dates: start: 20071218
  11. XYLOCAINE [Concomitant]
     Indication: OSTEOARTHRITIS
     Route: 014
     Dates: start: 20071218

REACTIONS (1)
  - GASTRIC CANCER [None]
